FAERS Safety Report 4563304-8 (Version None)
Quarter: 2005Q1

REPORT INFORMATION
  Report Type: 
  Country: None (occurrence: None)
  Receive Date: 20050128
  Receipt Date: 20031211
  Transmission Date: 20050727
  Serious: No
  Sender: FDA-Public Use
  Company Number: S03-USA-04967-01

PATIENT
  Sex: Female

DRUGS (2)
  1. WELLBUTRIN [Suspect]
     Indication: ILL-DEFINED DISORDER
     Dosage: 200MG PER DAY
     Route: 048
  2. LEXAPRO [Suspect]
     Indication: ILL-DEFINED DISORDER
     Dosage: 10MG PER DAY
     Route: 048
     Dates: start: 20031201

REACTIONS (1)
  - FATIGUE [None]
